FAERS Safety Report 6952196-5 (Version None)
Quarter: 2010Q3

REPORT INFORMATION
  Report Type: 
  Country: None (occurrence: None)
  Receive Date: 20100829
  Receipt Date: 20100608
  Transmission Date: 20110219
  Serious: No
  Sender: FDA-Public Use
  Company Number: US-ABBOTT-09P-163-0617089-00

PATIENT
  Sex: Female
  Weight: 72.64 kg

DRUGS (9)
  1. NIASPAN [Suspect]
     Indication: HYPERLIPIDAEMIA
     Dosage: AT BEDTIME
     Dates: start: 20091101
  2. NIASPAN [Suspect]
     Indication: BLOOD CHOLESTEROL INCREASED
     Dosage: AT BEDTIME
     Dates: start: 20100605
  3. DIOVAN [Concomitant]
     Indication: HYPERTENSION
     Route: 048
  4. EVISTA [Concomitant]
     Indication: OSTEOPOROSIS
     Route: 048
  5. ONE A DAY VITAMIN [Concomitant]
     Indication: PRODUCT USED FOR UNKNOWN INDICATION
  6. TUMS FOR CALCIUM [Concomitant]
     Indication: PRODUCT USED FOR UNKNOWN INDICATION
  7. ASPIRIN [Concomitant]
     Indication: FLUSHING
     Route: 048
     Dates: start: 20091101
  8. ASPIRIN [Concomitant]
     Indication: PROPHYLAXIS
  9. CRESTOR [Concomitant]
     Indication: PRODUCT USED FOR UNKNOWN INDICATION

REACTIONS (6)
  - FALL [None]
  - GENERALISED ERYTHEMA [None]
  - PAIN [None]
  - PRURITUS [None]
  - SKIN BURNING SENSATION [None]
  - SKIN DISCOLOURATION [None]
